FAERS Safety Report 5638020-1 (Version None)
Quarter: 2008Q1

REPORT INFORMATION
  Report Type: 
  Country: None (occurrence: None)
  Receive Date: 20080221
  Receipt Date: 20080208
  Transmission Date: 20080703
  Serious: Yes (Other)
  Sender: FDA-Public Use
  Company Number: 2008BI003470

PATIENT
  Age: 47 Year
  Sex: Female
  Weight: 47.6277 kg

DRUGS (1)
  1. AVONEX [Suspect]
     Indication: MULTIPLE SCLEROSIS
     Dosage: 30 UG; QW; IM
     Route: 030
     Dates: start: 20010201

REACTIONS (4)
  - COUGH [None]
  - NASOPHARYNGITIS [None]
  - NEOPLASM MALIGNANT [None]
  - RENAL MASS [None]
